FAERS Safety Report 4685031-9 (Version None)
Quarter: 2005Q2

REPORT INFORMATION
  Report Type: 
  Country: None (occurrence: None)
  Receive Date: 20050531
  Receipt Date: 20050225
  Transmission Date: 20051028
  Serious: No
  Sender: FDA-Public Use
  Company Number: WAES 0502USA03599

PATIENT
  Age: 66 Year
  Sex: Female

DRUGS (8)
  1. ZETIA [Suspect]
     Indication: HYPERLIPIDAEMIA
     Dosage: SEE IMAGE
     Route: 048
     Dates: start: 20041203, end: 20041201
  2. ZETIA [Suspect]
     Indication: HYPERLIPIDAEMIA
     Dosage: SEE IMAGE
     Route: 048
     Dates: start: 20041201, end: 20050101
  3. ZETIA [Suspect]
     Indication: HYPERLIPIDAEMIA
     Dosage: SEE IMAGE
     Route: 048
     Dates: start: 20050101, end: 20050201
  4. VALTORIN [Concomitant]
  5. ASPIRIN [Concomitant]
  6. ESTROGENS (UNSPECIFIED) [Concomitant]
  7. OMEPRAZOLE [Concomitant]
  8. VITAMINS (UNSPECIFIED) [Concomitant]

REACTIONS (2)
  - INAPPROPRIATE SCHEDULE OF DRUG ADMINISTRATION [None]
  - MYALGIA INTERCOSTAL [None]
